FAERS Safety Report 14046420 (Version 1)
Quarter: 2017Q4

REPORT INFORMATION
  Report Type: Report from Study
  Country: None (occurrence: CA)
  Receive Date: 20171005
  Receipt Date: 20171005
  Transmission Date: 20180321
  Serious: Yes (Other)
  Sender: FDA-Public Use
  Company Number: CA-ABBVIE-17K-028-1933948-00

PATIENT
  Sex: Female

DRUGS (4)
  1. HUMIRA [Suspect]
     Active Substance: ADALIMUMAB
     Route: 058
     Dates: end: 2017
  2. HUMIRA [Suspect]
     Active Substance: ADALIMUMAB
     Dosage: WEEK 0
     Route: 058
  3. HUMIRA [Suspect]
     Active Substance: ADALIMUMAB
     Indication: CROHN^S DISEASE
     Route: 058
     Dates: start: 20110822, end: 201612
  4. HUMIRA [Suspect]
     Active Substance: ADALIMUMAB
     Dosage: WEEK 2
     Route: 058

REACTIONS (18)
  - Rectal haemorrhage [Unknown]
  - Skin mass [Not Recovered/Not Resolved]
  - Weight increased [Unknown]
  - Wound complication [Not Recovered/Not Resolved]
  - Anorectal discomfort [Unknown]
  - Headache [Not Recovered/Not Resolved]
  - Wound abscess [Not Recovered/Not Resolved]
  - Abdominal pain [Not Recovered/Not Resolved]
  - Device dislocation [Unknown]
  - Fistula discharge [Recovering/Resolving]
  - Anal fistula [Recovering/Resolving]
  - Fatigue [Not Recovered/Not Resolved]
  - Discomfort [Not Recovered/Not Resolved]
  - Abscess [Not Recovered/Not Resolved]
  - Abdominal tenderness [Unknown]
  - Increased appetite [Unknown]
  - Perineal injury [Unknown]
  - Perineal pain [Unknown]

NARRATIVE: CASE EVENT DATE: 2017
